FAERS Safety Report 14663209 (Version 1)
Quarter: 2018Q1

REPORT INFORMATION
  Report Type: Spontaneous
  Country: US (occurrence: US)
  Receive Date: 20180319
  Receipt Date: 20180319
  Transmission Date: 20180509
  Serious: No
  Sender: FDA-Public Use
  Company Number: None

PATIENT
  Age: 50 Year
  Sex: Female

DRUGS (1)
  1. COSENTYX [Suspect]
     Active Substance: SECUKINUMAB
     Indication: RHEUMATOID ARTHRITIS
     Dosage: TWO PENS (300 MG) ONCE A WEEK FOR 5 WEEKS SUBCUTANEOUSLY
     Route: 058
     Dates: start: 20180126

REACTIONS (1)
  - Pancreatitis [None]
